FAERS Safety Report 6936092-5 (Version None)
Quarter: 2010Q3

REPORT INFORMATION
  Report Type: 
  Country: None (occurrence: None)
  Receive Date: 20100823
  Receipt Date: 20100809
  Transmission Date: 20110219
  Serious: Yes (Hospitalization, Other)
  Sender: FDA-Public Use
  Company Number: JP-PAR PHARMACEUTICAL, INC-2010SCPR001964

PATIENT

DRUGS (17)
  1. DEXAMETHASONE [Suspect]
     Indication: MULTIPLE MYELOMA
     Dosage: UNK
     Route: 065
  2. DEXAMETHASONE [Suspect]
     Dosage: UNK
     Route: 065
     Dates: start: 20050101
  3. DEXAMETHASONE [Suspect]
     Dosage: 8 MG/D
     Route: 065
     Dates: start: 20080317
  4. DEXAMETHASONE [Suspect]
     Dosage: 8 MG/D
     Route: 065
     Dates: start: 20080320
  5. DEXAMETHASONE [Suspect]
     Dosage: 8 MG, UNK
     Route: 065
     Dates: start: 20080407
  6. DEXAMETHASONE [Suspect]
     Dosage: 8 MG/D
     Route: 065
     Dates: start: 20100410
  7. BORTEZOMIB [Suspect]
     Indication: MULTIPLE MYELOMA
     Dosage: 0.7 MG/M2/D
     Route: 065
     Dates: start: 20100317
  8. BORTEZOMIB [Suspect]
     Dosage: 0.7 MG/M2/D
     Route: 065
     Dates: start: 20100320
  9. BORTEZOMIB [Suspect]
     Dosage: 0.7 MG/M2/D
     Route: 065
     Dates: start: 20100407
  10. BORTEZOMIB [Suspect]
     Dosage: 0.7 MG/M2/D
     Route: 065
     Dates: start: 20100410
  11. MELPHALAN [Concomitant]
     Indication: PRODUCT USED FOR UNKNOWN INDICATION
     Dosage: UNK
     Route: 065
  12. PREDNISOLONE [Concomitant]
     Indication: PRODUCT USED FOR UNKNOWN INDICATION
     Dosage: UNK
     Route: 065
  13. VINCRISTINE [Concomitant]
     Indication: PRODUCT USED FOR UNKNOWN INDICATION
     Dosage: UNK
     Route: 065
  14. DOXORUBICIN HCL [Concomitant]
     Indication: PRODUCT USED FOR UNKNOWN INDICATION
     Dosage: UNK
     Route: 065
  15. RANIMUSTINE [Concomitant]
     Indication: PRODUCT USED FOR UNKNOWN INDICATION
     Dosage: UNK
     Route: 065
  16. INTERFERON ALFA [Concomitant]
     Indication: PRODUCT USED FOR UNKNOWN INDICATION
     Dosage: UNK
     Route: 065
  17. THALIDOMIDE [Concomitant]
     Indication: PRODUCT USED FOR UNKNOWN INDICATION
     Dosage: UNK
     Route: 065

REACTIONS (7)
  - ACUTE MYOCARDIAL INFARCTION [None]
  - ANGINA PECTORIS [None]
  - CORONARY ARTERY STENOSIS [None]
  - ECHOCARDIOGRAM ABNORMAL [None]
  - HAEMATOCRIT DECREASED [None]
  - HAEMOGLOBIN DECREASED [None]
  - RED BLOOD CELL COUNT DECREASED [None]
